FAERS Safety Report 8898160 (Version 4)
Quarter: 2013Q1

REPORT INFORMATION
  Report Type: Spontaneous
  Country: US (occurrence: US)
  Receive Date: 20121109
  Receipt Date: 20130116
  Transmission Date: 20140127
  Serious: Yes (Hospitalization, Other)
  Sender: FDA-Public Use
  Company Number: US-BIOGENIDEC-2012BI050335

PATIENT
  Age: 70 Year
  Sex: Female

DRUGS (13)
  1. AVONEX [Suspect]
     Indication: MULTIPLE SCLEROSIS
     Route: 030
     Dates: start: 20020721, end: 20060629
  2. AVONEX [Suspect]
     Indication: MULTIPLE SCLEROSIS
     Route: 030
     Dates: start: 20071029, end: 201212
  3. GABAPENTIN [Concomitant]
  4. CLONAZEPAM [Concomitant]
  5. PEPCID [Concomitant]
  6. PROPRANOLOL [Concomitant]
     Indication: BLOOD PRESSURE
  7. PROPRANOLOL [Concomitant]
     Indication: BLOOD PRESSURE
  8. TRAMADOL [Concomitant]
     Indication: PAIN
     Route: 048
  9. ACETAMINOPHEN [Concomitant]
     Indication: PAIN
     Route: 048
  10. GABAPENTIN [Concomitant]
     Route: 048
  11. FAMOTIDINE [Concomitant]
     Route: 048
  12. CITALOPRAM [Concomitant]
  13. HYDROCODONE [Concomitant]
     Indication: BACK PAIN

REACTIONS (10)
  - Renal failure chronic [Unknown]
  - Mental status changes [Unknown]
  - Coordination abnormal [Unknown]
  - Dementia [Unknown]
  - Fall [Recovered/Resolved]
  - Head injury [Unknown]
  - Rib fracture [Recovered/Resolved]
  - Cystitis [Recovered/Resolved]
  - Multiple sclerosis relapse [Recovered/Resolved]
  - Convulsion [Recovered/Resolved]
